FAERS Safety Report 16678253 (Version 1)
Quarter: 2019Q3

REPORT INFORMATION
  Report Type: Spontaneous
  Country: US (occurrence: US)
  Receive Date: 20190806
  Receipt Date: 20190806
  Transmission Date: 20191004
  Serious: Yes (Other)
  Sender: FDA-Public Use
  Company Number: None

PATIENT
  Age: 77 Year
  Sex: Female
  Weight: 81.9 kg

DRUGS (11)
  1. XANAX [Concomitant]
     Active Substance: ALPRAZOLAM
  2. CALCIUM [Concomitant]
     Active Substance: CALCIUM
  3. CABERGOLINE. [Suspect]
     Active Substance: CABERGOLINE
     Indication: PITUITARY TUMOUR
     Dosage: ?          QUANTITY:6 TABLET(S);OTHER FREQUENCY:1/2 TAB ONCE WEEK;?
     Route: 048
     Dates: start: 20120801
  4. SINGULAIR [Concomitant]
     Active Substance: MONTELUKAST SODIUM
  5. CLARITIN [Concomitant]
     Active Substance: LORATADINE
  6. MAGNESIUM [Concomitant]
     Active Substance: MAGNESIUM
  7. VITAMIN D3 SUPPLEMENT [Concomitant]
  8. CABERGOLINE. [Concomitant]
     Active Substance: CABERGOLINE
  9. ZINC. [Concomitant]
     Active Substance: ZINC
  10. INDERAL [Concomitant]
     Active Substance: PROPRANOLOL HYDROCHLORIDE
  11. ESTRADIOL. [Concomitant]
     Active Substance: ESTRADIOL

REACTIONS (2)
  - Rosacea [None]
  - Hypersensitivity [None]

NARRATIVE: CASE EVENT DATE: 20190116
